FAERS Safety Report 13050450 (Version 2)
Quarter: 2017Q1

REPORT INFORMATION
  Report Type: Spontaneous
  Country: DE (occurrence: DE)
  Receive Date: 20161221
  Receipt Date: 20170202
  Transmission Date: 20170428
  Serious: Yes (Hospitalization)
  Sender: FDA-Public Use
  Company Number: DE-BEH-2016076089

PATIENT
  Age: 67 Year
  Sex: Male
  Weight: 112 kg

DRUGS (12)
  1. METHOTREXATE. [Concomitant]
     Active Substance: METHOTREXATE
     Dosage: 15 MG, ONCE WEEKLY ON SUNDAY
     Route: 058
  2. ALLOPURINOL. [Concomitant]
     Active Substance: ALLOPURINOL
     Dosage: 150 (300) MG, OD; 1/2-0-0
     Route: 065
  3. HYDROMORPHONE [Concomitant]
     Active Substance: HYDROMORPHONE
     Dosage: 24 MG, OD; 1-0-1/2
     Route: 065
  4. LEVOFLOXACIN. [Concomitant]
     Active Substance: LEVOFLOXACIN
     Dosage: 500 MG, OD; 1-0-0
     Route: 065
     Dates: end: 20160829
  5. LANTUS [Concomitant]
     Active Substance: INSULIN GLARGINE
     Dosage: 23 IU, OD; LATE EVENINGS
     Route: 065
  6. METFORMIN [Concomitant]
     Active Substance: METFORMIN HYDROCHLORIDE
     Dosage: 1000 MG, BID; 1-0-1
     Route: 065
  7. APIDRA [Concomitant]
     Active Substance: INSULIN GLULISINE
     Dosage: 68 IU, TOT; 28 IU-20 IU-20 IU
     Route: 065
  8. METAMIZOL                          /06276702/ [Concomitant]
     Active Substance: METAMIZOLE
     Dosage: 500 MG, UP TO QID IF NEEDED
     Route: 065
  9. PREDNISOLONE. [Concomitant]
     Active Substance: PREDNISOLONE
     Dosage: 5 MG, OD; 1-0-0
     Route: 065
  10. IRBESARTAN. [Concomitant]
     Active Substance: IRBESARTAN
     Dosage: 150 (300) MG, OD; 1/2-0-0
     Route: 065
  11. PRIVIGEN [Suspect]
     Active Substance: HUMAN IMMUNOGLOBULIN G
     Indication: POLYMYOSITIS
     Dosage: 30 G/APPROX. 2.5 HOURS, MONTHLY
     Route: 065
     Dates: start: 20160722
  12. PANTOPRAZOLE [Concomitant]
     Active Substance: PANTOPRAZOLE SODIUM
     Dosage: 40 MG, BID; 1-0-1
     Route: 065

REACTIONS (5)
  - Pulmonary embolism [Recovered/Resolved]
  - Pain [Not Recovered/Not Resolved]
  - Lung infiltration [Recovered/Resolved]
  - Gastrointestinal ulcer [Not Recovered/Not Resolved]
  - Decreased appetite [Not Recovered/Not Resolved]

NARRATIVE: CASE EVENT DATE: 20160817
